FAERS Safety Report 11795028 (Version 2)
Quarter: 2016Q1

REPORT INFORMATION
  Report Type: Report from Study
  Country: GE (occurrence: GE)
  Receive Date: 20151202
  Receipt Date: 20160119
  Transmission Date: 20160525
  Serious: Yes (Death, Other)
  Sender: FDA-Public Use
  Company Number: GE-GILEAD-2015-0184942

PATIENT
  Age: 53 Year
  Sex: Male

DRUGS (3)
  1. INF [Suspect]
     Active Substance: INTERFERON ALFA-2B
     Indication: CHRONIC HEPATITIS C
     Dosage: 180 UG, UNK
     Route: 058
     Dates: start: 20150821, end: 20151031
  2. SOFOSBUVIR [Suspect]
     Active Substance: SOFOSBUVIR
     Indication: CHRONIC HEPATITIS C
     Dosage: 400 MG, UNK
     Route: 048
     Dates: start: 20150821, end: 20151031
  3. RIBAVIRIN. [Suspect]
     Active Substance: RIBAVIRIN
     Indication: CHRONIC HEPATITIS C
     Dosage: 200 MG, UNK
     Route: 048
     Dates: start: 20150821, end: 20151031

REACTIONS (2)
  - Gastroduodenal haemorrhage [Fatal]
  - Large intestinal haemorrhage [Fatal]
